FAERS Safety Report 6758240-2 (Version None)
Quarter: 2010Q2

REPORT INFORMATION
  Report Type: 
  Country: None (occurrence: None)
  Receive Date: 20100607
  Receipt Date: 20100524
  Transmission Date: 20101027
  Serious: Yes (Hospitalization)
  Sender: FDA-Public Use
  Company Number: US-ELI_LILLY_AND_COMPANY-US201005001392

PATIENT
  Sex: Female
  Weight: 59.864 kg

DRUGS (8)
  1. PEMETREXED [Suspect]
     Indication: NON-SMALL CELL LUNG CANCER
     Dosage: 500 MG/M2, OTHER
     Route: 042
     Dates: start: 20100304, end: 20100415
  2. CISPLATIN [Suspect]
     Indication: NON-SMALL CELL LUNG CANCER
     Dosage: 75 MG/M2, OTHER
     Route: 042
     Dates: start: 20100304, end: 20100415
  3. FOLIC ACID [Concomitant]
     Dosage: 1 MG, DAILY (1/D)
     Route: 048
     Dates: start: 20100205
  4. VITAMIN B-12 [Concomitant]
     Dates: start: 20100211
  5. VITAMIN B-12 [Concomitant]
     Dates: start: 20100415
  6. WARFARIN SODIUM [Concomitant]
     Dosage: UNK, DAILY (1/D)
     Route: 048
  7. ZOFRAN [Concomitant]
     Dosage: 8 MG, AS NEEDED
     Route: 048
  8. COMPAZINE [Concomitant]
     Dosage: 10 MG, AS NEEDED

REACTIONS (1)
  - DYSPNOEA [None]
